FAERS Safety Report 6086252-3 (Version None)
Quarter: 2009Q1

REPORT INFORMATION
  Report Type: 
  Country: None (occurrence: None)
  Receive Date: 20090220
  Receipt Date: 20081201
  Transmission Date: 20090719
  Serious: No
  Sender: FDA-Public Use
  Company Number: US-ASTRAZENECA-2008UW26996

PATIENT
  Sex: Male

DRUGS (1)
  1. PLENDIL [Suspect]
     Dosage: 5 MG
     Route: 048
     Dates: start: 20080601

REACTIONS (1)
  - LIGAMENT DISORDER [None]
